FAERS Safety Report 7480393-1 (Version None)
Quarter: 2011Q2

REPORT INFORMATION
  Report Type: 
  Country: None (occurrence: None)
  Receive Date: 20110516
  Receipt Date: 20110511
  Transmission Date: 20111010
  Serious: Yes (Death)
  Sender: FDA-Public Use
  Company Number: PHHY2011NL29612

PATIENT
  Sex: Male

DRUGS (2)
  1. ZOMETA [Suspect]
     Indication: LUNG CANCER METASTATIC
     Dosage: 4MG/5ML PER 28 DAYS
     Dates: start: 20110119
  2. ZOMETA [Suspect]
     Dosage: 4MG/5ML PER 28 DAYS
     Dates: start: 20110218

REACTIONS (2)
  - DEATH [None]
  - MALAISE [None]
